FAERS Safety Report 8677094 (Version 2)
Quarter: 2013Q4

REPORT INFORMATION
  Report Type: Spontaneous
  Country: JP (occurrence: JP)
  Receive Date: 20120723
  Receipt Date: 20131108
  Transmission Date: 20140711
  Serious: Yes (Other)
  Sender: FDA-Public Use
  Company Number: JP-009507513-1207JPN002809

PATIENT
  Age: 79 Year
  Sex: Female
  Weight: 49 kg

DRUGS (11)
  1. REBETOL [Suspect]
     Indication: HEPATITIS C
     Dosage: 200 MG, BID
     Route: 048
     Dates: start: 20120322, end: 20120622
  2. FERON [Suspect]
     Indication: HEPATITIS C
     Dosage: 6 MILLION IU, ONCE
     Route: 041
     Dates: start: 20120322, end: 20120408
  3. FERON [Suspect]
     Route: 041
     Dates: start: 20120409, end: 20120622
  4. RENIVACE [Concomitant]
     Dosage: THE DIVIDED DOSE FREQUENCY IS UNCERTAIN.
     Route: 048
     Dates: end: 20120622
  5. ARICEPT [Concomitant]
     Indication: DEMENTIA
     Dosage: THE DIVIDED DOSE FREQUENCY IS UNCERTAIN.
     Route: 048
     Dates: end: 20120622
  6. MAGMITT [Concomitant]
     Indication: CONSTIPATION
     Dosage: THE DIVIDED DOSE FREQUENCY IS UNCERTAIN.
     Route: 048
     Dates: end: 20120622
  7. FERROMIA [Concomitant]
     Indication: UPPER GASTROINTESTINAL HAEMORRHAGE
     Dosage: THE DIVIDED DOSE FREQUENCY IS UNCERTAIN.
     Route: 048
     Dates: end: 20120622
  8. PROTECADIN [Concomitant]
     Indication: UPPER GASTROINTESTINAL HAEMORRHAGE
     Dosage: THE DIVIDED DOSE FREQUENCY IS UNCERTAIN.
     Route: 048
     Dates: end: 20120622
  9. LOXONIN [Concomitant]
     Indication: HEPATITIS C
     Dosage: AS NEEDED
     Route: 048
     Dates: start: 20120322, end: 20120622
  10. SELBEX [Concomitant]
     Indication: HEPATITIS C
     Dosage: AS NEEDED
     Route: 048
     Dates: start: 20120322, end: 20120622
  11. [THERAPY UNSPECIFIED] [Concomitant]
     Indication: HEPATITIS C
     Route: 048
     Dates: start: 20120622, end: 20120622

REACTIONS (1)
  - Cerebral haemorrhage [Not Recovered/Not Resolved]
